FAERS Safety Report 12444826 (Version 1)
Quarter: 2016Q2

REPORT INFORMATION
  Report Type: Spontaneous
  Country: CN (occurrence: CN)
  Receive Date: 20160607
  Receipt Date: 20160607
  Transmission Date: 20160815
  Serious: Yes (Other)
  Sender: FDA-Public Use
  Company Number: CN-ASTRAZENECA-2016SE60033

PATIENT
  Age: 28124 Day
  Sex: Male

DRUGS (3)
  1. SEROQUEL [Suspect]
     Active Substance: QUETIAPINE FUMARATE
     Indication: PSYCHIATRIC SYMPTOM
     Route: 048
     Dates: start: 20151001, end: 20151010
  2. DEPAKINE [Suspect]
     Active Substance: VALPROATE SODIUM
     Indication: MOOD ALTERED
     Route: 048
     Dates: start: 20151001, end: 20151010
  3. SEROQUEL [Suspect]
     Active Substance: QUETIAPINE FUMARATE
     Indication: DEPRESSION
     Route: 048
     Dates: start: 20151001, end: 20151010

REACTIONS (3)
  - Hepatic function abnormal [Recovering/Resolving]
  - Aspartate aminotransferase increased [Recovering/Resolving]
  - Alanine aminotransferase increased [Recovering/Resolving]

NARRATIVE: CASE EVENT DATE: 20151010
